FAERS Safety Report 8679843 (Version 2)
Quarter: 2012Q4

REPORT INFORMATION
  Report Type: 
  Country: US (occurrence: US)
  Receive Date: 20120724
  Receipt Date: 20120828
  Transmission Date: 20130627
  Serious: Yes (Other)
  Sender: FDA-Public Use
  Company Number: US-PFIZER INC-2012175248

PATIENT
  Age: 71 Year
  Sex: Male
  Weight: 89.8 kg

DRUGS (5)
  1. PRISTIQ [Suspect]
     Indication: ANXIETY
     Dosage: 50 mg, 1x/day
     Route: 048
     Dates: start: 201207
  2. PRISTIQ [Suspect]
     Indication: DEPRESSION
  3. PRISTIQ [Suspect]
     Indication: NERVOUSNESS
  4. PRISTIQ [Suspect]
     Indication: IRRITABILITY
  5. NAMENDA [Concomitant]
     Indication: AMNESIA
     Dosage: UNK

REACTIONS (3)
  - Loss of consciousness [Unknown]
  - Anxiety [Unknown]
  - Drug ineffective [Unknown]
